FAERS Safety Report 5016791-5 (Version None)
Quarter: 2006Q2

REPORT INFORMATION
  Report Type: 
  Country: None (occurrence: None)
  Receive Date: 20060602
  Receipt Date: 20060111
  Transmission Date: 20061013
  Serious: No
  Sender: FDA-Public Use
  Company Number: US-GLAXOSMITHKLINE-A0588822A

PATIENT
  Age: 75 Year
  Sex: Male

DRUGS (3)
  1. AUGMENTIN XR [Suspect]
     Dosage: 2000MG TWICE PER DAY
     Route: 048
     Dates: start: 20060110
  2. COUMADIN [Concomitant]
  3. DIGITALIS [Concomitant]

REACTIONS (2)
  - DIARRHOEA [None]
  - DYSPHAGIA [None]
